FAERS Safety Report 24918414 (Version 1)
Quarter: 2025Q1

REPORT INFORMATION
  Report Type: Report from Study
  Country: US (occurrence: US)
  Receive Date: 20250203
  Receipt Date: 20250203
  Transmission Date: 20250409
  Serious: Yes (Other)
  Sender: MERZ
  Company Number: US-ACORDA THERAPEUTICS IRELAND LIMITED-ACO_176335_2025

PATIENT
  Sex: Female

DRUGS (1)
  1. INBRIJA [Suspect]
     Active Substance: LEVODOPA
     Indication: Product used for unknown indication
     Route: 065

REACTIONS (2)
  - Dystonia [Unknown]
  - Dyskinesia [Unknown]
